FAERS Safety Report 7633143-X (Version None)
Quarter: 2011Q3

REPORT INFORMATION
  Report Type: 
  Country: None (occurrence: None)
  Receive Date: 20110725
  Receipt Date: 20110713
  Transmission Date: 20111222
  Serious: Yes (Hospitalization, Other)
  Sender: FDA-Public Use
  Company Number: DE-ROCHE-777821

PATIENT
  Sex: Male

DRUGS (48)
  1. TORSEMIDE [Suspect]
     Route: 042
     Dates: start: 20050624, end: 20050624
  2. CLONIDINE HCL [Suspect]
     Dosage: UNKNOWN DAILY AMOUNT VIA SYRINGE PUMP
     Route: 042
     Dates: start: 20050624, end: 20050709
  3. PROMETHAZINE HCL [Suspect]
     Route: 048
     Dates: start: 20050608, end: 20050708
  4. TORSEMIDE [Suspect]
     Route: 042
     Dates: start: 20050623, end: 20050623
  5. MORPHINE [Suspect]
     Dosage: 19 EMPTY VIALS FOUND (EACH 10 MG) UNKNOWN IF ALL 19 VIALS WERE ADMINISTERED.
     Route: 065
     Dates: start: 20050622, end: 20050622
  6. PROPOFOL [Suspect]
     Route: 042
     Dates: start: 20050622, end: 20050622
  7. HALDOL [Suspect]
     Route: 042
     Dates: start: 20050625, end: 20050625
  8. HALDOL [Suspect]
     Route: 042
     Dates: start: 20050702, end: 20050702
  9. MIDAZOLAM HCL [Suspect]
     Route: 042
     Dates: start: 20050702, end: 20050702
  10. LORAZEPAM [Suspect]
     Route: 042
     Dates: start: 20050705, end: 20050705
  11. PROPOFOL [Suspect]
     Route: 042
     Dates: start: 20050625, end: 20050625
  12. CLORAZEPATE DIPOTASSIUM [Suspect]
     Route: 042
     Dates: start: 20050708, end: 20050708
  13. LUDIOMIL [Suspect]
     Dosage: UNKNOWN AMOUNT VIA SYRINGE PUMP
     Route: 042
     Dates: start: 20050701, end: 20050701
  14. DIPYRONE INJ [Suspect]
     Route: 042
     Dates: start: 20050709, end: 20050709
  15. MADOPAR [Suspect]
     Route: 048
     Dates: start: 20050707, end: 20050710
  16. TORSEMIDE [Suspect]
     Route: 048
     Dates: start: 20050622, end: 20050622
  17. KETAMINE HCL [Suspect]
     Route: 042
     Dates: start: 20050705, end: 20050705
  18. KETAMINE HCL [Suspect]
     Route: 042
     Dates: start: 20050708, end: 20050708
  19. LORAZEPAM [Suspect]
     Route: 042
     Dates: start: 20050709, end: 20050709
  20. PROPOFOL [Suspect]
     Dosage: UNKNOWN AMOUNT VIA SYRINGE PUMP
     Route: 042
     Dates: start: 20050624, end: 20050624
  21. CLORAZEPATE DIPOTASSIUM [Suspect]
     Route: 042
     Dates: start: 20050627, end: 20050627
  22. HALDOL [Suspect]
     Route: 042
     Dates: start: 20050627, end: 20050630
  23. HALDOL [Suspect]
     Route: 042
     Dates: start: 20050701, end: 20050701
  24. PROMETHAZINE HCL [Suspect]
     Route: 042
     Dates: start: 20050709, end: 20050709
  25. CIPRO [Suspect]
     Route: 042
     Dates: start: 20050709, end: 20050711
  26. PROPOFOL [Suspect]
     Route: 042
     Dates: start: 20050623, end: 20050623
  27. CLORAZEPATE DIPOTASSIUM [Suspect]
     Route: 042
     Dates: start: 20050624, end: 20050624
  28. CLORAZEPATE DIPOTASSIUM [Suspect]
     Route: 042
     Dates: start: 20050705, end: 20050705
  29. LUDIOMIL [Suspect]
     Dosage: UNKNOWN AMOUNT VIA SYRINGE PUMP
     Route: 042
     Dates: start: 20050628, end: 20050629
  30. PROMETHAZINE HCL [Suspect]
     Route: 048
     Dates: start: 20050710, end: 20050710
  31. ASPIRIN [Suspect]
     Route: 048
     Dates: start: 20050706, end: 20050706
  32. ACETAMINOPHEN [Suspect]
     Route: 042
     Dates: start: 20050709, end: 20050709
  33. MIDAZOLAM HCL [Suspect]
     Dosage: DOSE: UNKNOWN AMOUNT VIA SYRINGE PUMP
     Route: 042
     Dates: start: 20050623, end: 20050624
  34. TORSEMIDE [Suspect]
     Route: 048
     Dates: start: 20050704, end: 20050704
  35. LUDIOMIL [Suspect]
     Route: 048
     Dates: start: 20050705, end: 20050710
  36. NEXIUM [Suspect]
     Route: 042
     Dates: start: 20050622, end: 20050703
  37. SCOPOLAMINE [Suspect]
     Route: 042
     Dates: start: 20050709, end: 20050709
  38. KETAMINE HCL [Suspect]
     Route: 042
     Dates: start: 20050702, end: 20050702
  39. LORAZEPAM [Suspect]
     Route: 042
     Dates: start: 20050630, end: 20050701
  40. CLORAZEPATE DIPOTASSIUM [Suspect]
     Route: 042
     Dates: start: 20050629, end: 20050701
  41. HALDOL [Suspect]
     Route: 042
     Dates: start: 20050626, end: 20050626
  42. LUDIOMIL [Suspect]
     Route: 048
     Dates: start: 20050711, end: 20050711
  43. METHYLPREDNISOLONE [Suspect]
     Route: 042
     Dates: start: 20050624, end: 20050624
  44. NEXIUM [Suspect]
     Route: 048
     Dates: start: 20050704, end: 20050711
  45. CLORAZEPATE DIPOTASSIUM [Suspect]
     Route: 042
     Dates: start: 20050625, end: 20050625
  46. HALDOL [Suspect]
     Route: 042
     Dates: start: 20050703, end: 20050704
  47. LUDIOMIL [Suspect]
     Route: 042
     Dates: start: 20050630, end: 20050630
  48. METOCLOPRAMIDE [Suspect]
     Route: 065
     Dates: start: 20050709, end: 20050709

REACTIONS (10)
  - DISORIENTATION [None]
  - CHOLECYSTECTOMY [None]
  - FALL [None]
  - DRUG ADMINISTRATION ERROR [None]
  - SUICIDE ATTEMPT [None]
  - ACUTE ABDOMEN [None]
  - TRACHEOBRONCHITIS [None]
  - DRUG INTERACTION [None]
  - OVERDOSE [None]
  - AGITATION [None]
